FAERS Safety Report 7879780-9 (Version None)
Quarter: 2011Q4

REPORT INFORMATION
  Report Type: 
  Country: None (occurrence: None)
  Receive Date: 20111101
  Receipt Date: 20100519
  Transmission Date: 20120403
  Serious: No
  Sender: FDA-Public Use
  Company Number: US-BAYER-201023452NA

PATIENT
  Age: 41 Year
  Sex: Male

DRUGS (8)
  1. AVELOX [Suspect]
     Indication: BRONCHITIS
     Dosage: 400 MG, QD
     Route: 048
     Dates: start: 20080314, end: 20080314
  2. CRESTOR [Concomitant]
  3. EFFEXOR [Concomitant]
  4. AVELOX [Suspect]
     Indication: UPPER RESPIRATORY TRACT INFECTION
  5. ZYRTEC [Concomitant]
  6. NASACORT AQ [Concomitant]
  7. NSAID'S [Concomitant]
  8. ED A-HIST [Suspect]

REACTIONS (2)
  - URTICARIA [None]
  - PRURITUS [None]
